FAERS Safety Report 14708150 (Version 2)
Quarter: 2018Q2

REPORT INFORMATION
  Report Type: Spontaneous
  Country: BR (occurrence: BR)
  Receive Date: 20180403
  Receipt Date: 20180626
  Transmission Date: 20180711
  Serious: Yes (Other)
  Sender: FDA-Public Use
  Company Number: PHHY2018BR054724

PATIENT
  Age: 20 Month
  Sex: Female
  Weight: 13 kg

DRUGS (3)
  1. LOSARTAN. [Suspect]
     Active Substance: LOSARTAN
     Indication: FOETAL EXPOSURE DURING PREGNANCY
     Dosage: UNK
     Route: 064
  2. DIPYRONE [Suspect]
     Active Substance: DIPYRONE
     Indication: FOETAL EXPOSURE DURING PREGNANCY
     Dosage: UNK
     Route: 063
  3. FORASEQ [Suspect]
     Active Substance: BUDESONIDE\FORMOTEROL FUMARATE
     Indication: FOETAL EXPOSURE DURING PREGNANCY
     Dosage: MATERNAL DOSE: 2 CAPSULES
     Route: 064

REACTIONS (9)
  - Poor feeding infant [Unknown]
  - Weight decreased [Unknown]
  - Gastrooesophageal reflux disease [Unknown]
  - Nasal polyps [Unknown]
  - Respiratory disorder [Unknown]
  - Asthma [Unknown]
  - Exposure via breast milk [Unknown]
  - Foetal exposure during pregnancy [Unknown]
  - Bone disorder [Unknown]

NARRATIVE: CASE EVENT DATE: 201802
